FAERS Safety Report 16922346 (Version 1)
Quarter: 2019Q4

REPORT INFORMATION
  Report Type: Spontaneous
  Country: GB (occurrence: GB)
  Receive Date: 20191016
  Receipt Date: 20191016
  Transmission Date: 20200122
  Serious: Yes (Other)
  Sender: FDA-Public Use
  Company Number: GB-TEVA-2019-GB-1121420

PATIENT
  Age: 51 Year
  Sex: Female
  Weight: 57 kg

DRUGS (1)
  1. TAMOXIFEN CITRATE. [Suspect]
     Active Substance: TAMOXIFEN CITRATE
     Indication: BREAST CANCER
     Dosage: 20 MILLIGRAM
     Route: 048
     Dates: start: 20171121

REACTIONS (2)
  - Urinary incontinence [Not Recovered/Not Resolved]
  - Micturition urgency [Unknown]

NARRATIVE: CASE EVENT DATE: 20171121
